FAERS Safety Report 7775557-3 (Version None)
Quarter: 2011Q3

REPORT INFORMATION
  Report Type: 
  Country: None (occurrence: None)
  Receive Date: 20110923
  Receipt Date: 20110913
  Transmission Date: 20111222
  Serious: Yes (Other)
  Sender: FDA-Public Use
  Company Number: BR-JNJFOC-20110906050

PATIENT
  Age: 70 Year
  Sex: Female

DRUGS (2)
  1. REMICADE [Suspect]
     Indication: RHEUMATOID ARTHRITIS
     Route: 042
     Dates: start: 20110601
  2. REMICADE [Suspect]
     Route: 042
     Dates: start: 20100201

REACTIONS (8)
  - HYPERSENSITIVITY [None]
  - DYSHIDROSIS [None]
  - BREAST CANCER [None]
  - FUNGAL INFECTION [None]
  - SKIN CANCER [None]
  - NAUSEA [None]
  - HYPERHIDROSIS [None]
  - INFUSION RELATED REACTION [None]
